FAERS Safety Report 4548548-3 (Version None)
Quarter: 2004Q4

REPORT INFORMATION
  Report Type: 
  Country: None (occurrence: None)
  Receive Date: 20041227
  Receipt Date: 20040920
  Transmission Date: 20050328
  Serious: No
  Sender: FDA-Public Use
  Company Number: 04P-163-0273873-00

PATIENT
  Age: 87 Year
  Sex: Female
  Weight: 140 kg

DRUGS (7)
  1. HUMIRA [Suspect]
     Indication: OSTEOARTHRITIS
     Dosage: 40 M G, SUBCUTANEOUS
     Route: 058
     Dates: start: 20040830
  2. HUMIRA [Suspect]
     Indication: RHEUMATOID ARTHRITIS
     Dosage: 40 M G, SUBCUTANEOUS
     Route: 058
     Dates: start: 20040830
  3. COUMADIN [Concomitant]
  4. PREDNISONE [Concomitant]
  5. POTASSIUM [Concomitant]
  6. AMLODIPINE BESYLATE [Concomitant]
  7. DARVOCET [Concomitant]

REACTIONS (3)
  - FAECES PALE [None]
  - HYPERCHLORHYDRIA [None]
  - LOOSE STOOLS [None]
